APPROVED DRUG PRODUCT: DECAPRYN
Active Ingredient: DOXYLAMINE SUCCINATE
Strength: 25MG
Dosage Form/Route: TABLET;ORAL
Application: N006412 | Product #014
Applicant: SANOFI AVENTIS US LLC
Approved: Approved Prior to Jan 1, 1982 | RLD: No | RS: No | Type: DISCN